FAERS Safety Report 6792880-X (Version None)
Quarter: 2010Q2

REPORT INFORMATION
  Report Type: 
  Country: None (occurrence: None)
  Receive Date: 20100624
  Receipt Date: 20081026
  Transmission Date: 20101027
  Serious: No
  Sender: FDA-Public Use
  Company Number: US-PFIZER INC-2008090086

PATIENT

DRUGS (2)
  1. CADUET [Suspect]
  2. LIPITOR [Concomitant]

REACTIONS (1)
  - PAIN IN EXTREMITY [None]
